APPROVED DRUG PRODUCT: RECTIV
Active Ingredient: NITROGLYCERIN
Strength: 0.4%
Dosage Form/Route: OINTMENT;INTRA-ANAL
Application: N021359 | Product #001 | TE Code: AB
Applicant: ABBVIE INC
Approved: Jun 21, 2011 | RLD: Yes | RS: Yes | Type: RX